FAERS Safety Report 7427763-5 (Version None)
Quarter: 2011Q2

REPORT INFORMATION
  Report Type: 
  Country: None (occurrence: None)
  Receive Date: 20110412
  Receipt Date: 20110330
  Transmission Date: 20111010
  Serious: Yes (Other)
  Sender: FDA-Public Use
  Company Number: 2011EK000009

PATIENT
  Age: 81 Year
  Sex: Male
  Weight: 89 kg

DRUGS (4)
  1. TOPROL-XL [Concomitant]
  2. LIPITOR [Concomitant]
  3. CARDENE [Suspect]
     Indication: BLOOD PRESSURE SYSTOLIC
     Dosage: IV
     Route: 042
     Dates: start: 20110323
  4. AMOXICILLIN [Concomitant]

REACTIONS (2)
  - LUNG DISORDER [None]
  - OXYGEN SATURATION ABNORMAL [None]
